FAERS Safety Report 17824501 (Version 3)
Quarter: 2020Q3

REPORT INFORMATION
  Report Type: Report from Study
  Country: US (occurrence: US)
  Receive Date: 20200526
  Receipt Date: 20200701
  Transmission Date: 20201102
  Serious: Yes (Other)
  Sender: FDA-Public Use
  Company Number: US-BEH-2020117917

PATIENT
  Age: 57 Year
  Sex: Female
  Weight: 105.22 kg

DRUGS (8)
  1. OCTAGAM IMMUNE GLOBULIN (HUMAN) [Suspect]
     Active Substance: HUMAN IMMUNOGLOBULIN G
     Dosage: UNK, QOW
     Route: 065
     Dates: start: 202001
  2. HYDROXYCHLOROQUINE [Concomitant]
     Active Substance: HYDROXYCHLOROQUINE
     Dosage: UNK, QD
     Dates: start: 2014
  3. METHOTREXATE. [Concomitant]
     Active Substance: METHOTREXATE
     Dosage: UNK, QW
     Route: 065
     Dates: start: 2014
  4. OCTAGAM IMMUNE GLOBULIN (HUMAN) [Suspect]
     Active Substance: HUMAN IMMUNOGLOBULIN G
     Dosage: UNK, QOW
     Route: 065
     Dates: start: 201901, end: 201906
  5. GAMMAGARD [Suspect]
     Active Substance: HUMAN IMMUNOGLOBULIN G
     Dosage: UNK, QOW
     Route: 065
  6. OCTAGAM IMMUNE GLOBULIN (HUMAN) [Suspect]
     Active Substance: HUMAN IMMUNOGLOBULIN G
     Dosage: UNK, QOW
     Route: 065
     Dates: start: 201507, end: 2015
  7. IVIG LYOPHILIZED [Suspect]
     Active Substance: HUMAN IMMUNOGLOBULIN G
     Dosage: NA [NOT AVAILABLE], QOW
     Route: 042
     Dates: start: 201509, end: 201812
  8. IVIG LYOPHILIZED [Suspect]
     Active Substance: HUMAN IMMUNOGLOBULIN G
     Indication: DERMATOMYOSITIS
     Dosage: NA [NOT AVAILABLE], QOW
     Route: 042
     Dates: start: 201409, end: 2015

REACTIONS (5)
  - Product availability issue [Recovered/Resolved]
  - Product use in unapproved indication [Unknown]
  - Therapy change [Recovered/Resolved]
  - No adverse event [Unknown]
  - Dermatomyositis [Recovered/Resolved]

NARRATIVE: CASE EVENT DATE: 201509
